FAERS Safety Report 17940837 (Version 1)
Quarter: 2020Q2

REPORT INFORMATION
  Report Type: Spontaneous
  Country: US (occurrence: US)
  Receive Date: 20200624
  Receipt Date: 20200624
  Transmission Date: 20200714
  Serious: Yes (Death, Other)
  Sender: FDA-Public Use
  Company Number: US-ENDO PHARMACEUTICALS INC-2020-004344

PATIENT
  Age: 42 Year

DRUGS (3)
  1. CITALOPRAM [Suspect]
     Active Substance: CITALOPRAM HYDROBROMIDE
     Indication: PRODUCT USED FOR UNKNOWN INDICATION
     Dosage: UNK UNKNOWN, UNKNOWN
     Route: 048
  2. VENLAFAXINE HYDROCHLORIDE. [Suspect]
     Active Substance: VENLAFAXINE HYDROCHLORIDE
     Indication: PRODUCT USED FOR UNKNOWN INDICATION
     Dosage: UNK UNKNOWN, UNKNOWN
     Route: 048
  3. COCAINE [Suspect]
     Active Substance: COCAINE
     Indication: PRODUCT USED FOR UNKNOWN INDICATION
     Dosage: UNK UNKNOWN, UNKNOWN
     Route: 048

REACTIONS (16)
  - Ventricular fibrillation [Unknown]
  - Incontinence [Unknown]
  - Urinary incontinence [Unknown]
  - Lethargy [Unknown]
  - Tachycardia [Unknown]
  - Hyperthermia [Unknown]
  - Tremor [Unknown]
  - Somnolence [Unknown]
  - Cardiac arrest [Unknown]
  - Bundle branch block left [Unknown]
  - Lactic acidosis [Unknown]
  - Hypertension [Unknown]
  - Death [Fatal]
  - Pyrexia [Unknown]
  - Hyperglycaemia [Unknown]
  - Tachypnoea [Unknown]

NARRATIVE: CASE EVENT DATE: 201209
